FAERS Safety Report 4374112-5 (Version None)
Quarter: 2004Q2

REPORT INFORMATION
  Report Type: 
  Country: None (occurrence: None)
  Receive Date: 20040607
  Receipt Date: 20040602
  Transmission Date: 20050107
  Serious: Yes (Hospitalization)
  Sender: FDA-Public Use
  Company Number: RO-MERCK-0406HUN00003

PATIENT
  Age: 84 Year
  Sex: Male
  Weight: 82 kg

DRUGS (2)
  1. FOSAMAX [Suspect]
     Indication: OSTEOPOROSIS
     Route: 048
     Dates: start: 20040301, end: 20040515
  2. CALCIUM (UNSPECIFIED) [Concomitant]
     Route: 048

REACTIONS (1)
  - DERMATITIS ALLERGIC [None]
